FAERS Safety Report 8176340-X (Version None)
Quarter: 2012Q1

REPORT INFORMATION
  Report Type: 
  Country: None (occurrence: None)
  Receive Date: 20120117
  Receipt Date: 20110501
  Transmission Date: 20120608
  Serious: Yes (Hospitalization)
  Sender: FDA-Public Use
  Company Number: D-11-022

PATIENT
  Age: 67 Year
  Sex: Male
  Weight: 107.9561 kg

DRUGS (7)
  1. SPIRIVA [Concomitant]
  2. FUROSEMIDE [Concomitant]
  3. IPRATROPIUM BROMIDE AND ALBUTEROL SULFATE [Suspect]
     Indication: BRONCHOSPASM
     Dosage: INHALATION VIA NEBULIZER
     Route: 055
     Dates: start: 20110501
  4. ADVAIR DISKUS 100/50 [Concomitant]
  5. NEXIUM [Concomitant]
  6. CLOPIDOGREL [Concomitant]
  7. IPRATROPIUM BROMIDE AND ALBUTEROL SULFATE [Suspect]

REACTIONS (2)
  - DYSPNOEA [None]
  - DRUG INEFFECTIVE [None]
